FAERS Safety Report 14302984 (Version 1)
Quarter: 2017Q4

REPORT INFORMATION
  Report Type: Spontaneous
  Country: US (occurrence: US)
  Receive Date: 20171219
  Receipt Date: 20171219
  Transmission Date: 20180321
  Serious: Yes (Death)
  Sender: FDA-Public Use
  Company Number: None

PATIENT
  Sex: Female

DRUGS (1)
  1. LETROZOLE 2.5MG TABS [Suspect]
     Active Substance: LETROZOLE
     Indication: BREAST CANCER FEMALE
     Dates: start: 201604, end: 201711

REACTIONS (1)
  - Death [None]

NARRATIVE: CASE EVENT DATE: 201712
